FAERS Safety Report 9877319 (Version 1)
Quarter: 2014Q1

REPORT INFORMATION
  Report Type: Spontaneous
  Country: US (occurrence: US)
  Receive Date: 20140206
  Receipt Date: 20140206
  Transmission Date: 20141002
  Serious: No
  Sender: FDA-Public Use
  Company Number: US-MYLANLABS-2013S1028906

PATIENT
  Age: 61 Year
  Sex: Male
  Weight: 67.13 kg

DRUGS (4)
  1. MODAFINIL TABLETS USP [Suspect]
     Indication: BRAIN TUMOUR OPERATION
     Route: 048
     Dates: start: 20131220
  2. MODAFINIL TABLETS USP [Suspect]
     Indication: OFF LABEL USE
     Route: 048
     Dates: start: 20131220
  3. CHOLESTEROL MEDICATION [Concomitant]
  4. ALPRAZOLAM [Concomitant]
     Indication: DIZZINESS

REACTIONS (4)
  - Drug ineffective for unapproved indication [Not Recovered/Not Resolved]
  - Feeling abnormal [Not Recovered/Not Resolved]
  - Dizziness [Not Recovered/Not Resolved]
  - Nausea [Not Recovered/Not Resolved]
